FAERS Safety Report 13511238 (Version 2)
Quarter: 2017Q2

REPORT INFORMATION
  Report Type: Spontaneous
  Country: US (occurrence: US)
  Receive Date: 20170503
  Receipt Date: 20170615
  Transmission Date: 20170830
  Serious: Yes (Other)
  Sender: FDA-Public Use
  Company Number: US-BRISTOL-MYERS SQUIBB COMPANY-BMS-2017-037446

PATIENT
  Sex: Female

DRUGS (3)
  1. ABILIFY [Suspect]
     Active Substance: ARIPIPRAZOLE
     Indication: BIPOLAR DISORDER
     Dosage: 1 DF, QD
     Route: 065
     Dates: start: 20100301
  2. ABILIFY [Suspect]
     Active Substance: ARIPIPRAZOLE
     Indication: POST-TRAUMATIC STRESS DISORDER
     Route: 065
  3. ABILIFY [Suspect]
     Active Substance: ARIPIPRAZOLE
     Indication: ANXIETY
     Route: 065

REACTIONS (8)
  - Suicidal ideation [Unknown]
  - Suicide attempt [Unknown]
  - Trichotillomania [Unknown]
  - Excoriation [Unknown]
  - Obsessive-compulsive disorder [Unknown]
  - Gambling [Unknown]
  - Compulsive shopping [Unknown]
  - Eating disorder [Unknown]
